FAERS Safety Report 5754338-6 (Version None)
Quarter: 2008Q2

REPORT INFORMATION
  Report Type: 
  Country: None (occurrence: None)
  Receive Date: 20080530
  Receipt Date: 20080520
  Transmission Date: 20081010
  Serious: Yes (Other)
  Sender: FDA-Public Use
  Company Number: BR-PFIZER INC-2008010399

PATIENT
  Sex: Male
  Weight: 65 kg

DRUGS (7)
  1. CHANTIX [Suspect]
     Indication: SMOKING CESSATION THERAPY
     Dosage: DAILY DOSE:2MG
     Route: 048
     Dates: start: 20071021, end: 20080110
  2. MONOCORDIL [Concomitant]
     Route: 048
  3. CRESTOR [Concomitant]
     Route: 048
  4. RANITIDINE [Concomitant]
     Route: 048
  5. ACETYLSALICYLIC ACID SRT [Concomitant]
     Route: 048
  6. ETHANOL [Concomitant]
  7. LEXOTAN [Concomitant]

REACTIONS (3)
  - ANGIOPLASTY [None]
  - HEADACHE [None]
  - NERVOUSNESS [None]
